FAERS Safety Report 19508670 (Version 1)
Quarter: 2021Q3

REPORT INFORMATION
  Report Type: Spontaneous
  Country: GB (occurrence: GB)
  Receive Date: 20210708
  Receipt Date: 20210708
  Transmission Date: 20211014
  Serious: Yes (Life-Threatening, Hospitalization, Other)
  Sender: FDA-Public Use
  Company Number: GB-PFIZER INC-2021620217

PATIENT
  Age: 26 Year
  Sex: Male

DRUGS (6)
  1. HYDROCORTISONE SODIUM SUCCINATE [Suspect]
     Active Substance: HYDROCORTISONE SODIUM SUCCINATE
     Dosage: 400 MG, DAILY
     Route: 042
  2. PREDNISOLONE/PREDNISOLONE STEAGLATE [Suspect]
     Active Substance: PREDNISOLONE\PREDNISOLONE STEAGLATE
     Dosage: DOSE TAPERED
  3. PREDNISOLONE/PREDNISOLONE STEAGLATE [Suspect]
     Active Substance: PREDNISOLONE\PREDNISOLONE STEAGLATE
     Dosage: UNK
  4. PREDNISOLONE/PREDNISOLONE STEAGLATE [Suspect]
     Active Substance: PREDNISOLONE\PREDNISOLONE STEAGLATE
     Dosage: 30 MG, DAILY (DOSAGE WAS RAISED)
     Route: 048
  5. HYDROCORTISONE SODIUM SUCCINATE [Suspect]
     Active Substance: HYDROCORTISONE SODIUM SUCCINATE
     Indication: CROHN^S DISEASE
     Dosage: 100 MG, DAILY (TAPERED DOSE)
     Route: 042
  6. PREDNISOLONE/PREDNISOLONE STEAGLATE [Suspect]
     Active Substance: PREDNISOLONE\PREDNISOLONE STEAGLATE
     Indication: CROHN^S DISEASE
     Dosage: 15 MG, QD

REACTIONS (2)
  - Substance-induced psychotic disorder [Recovered/Resolved]
  - Road traffic accident [Recovered/Resolved]
